FAERS Safety Report 24567730 (Version 1)
Quarter: 2024Q4

REPORT INFORMATION
  Report Type: Spontaneous
  Country: US (occurrence: US)
  Receive Date: 20241031
  Receipt Date: 20241031
  Transmission Date: 20250115
  Serious: No
  Sender: GILEAD
  Company Number: US-GILEAD-2024-0692321

PATIENT
  Age: 18 Year
  Sex: Male

DRUGS (2)
  1. CAYSTON [Suspect]
     Active Substance: AZTREONAM
     Indication: Bronchiectasis
     Dosage: UNK
     Route: 065
  2. CAYSTON [Suspect]
     Active Substance: AZTREONAM
     Indication: Pseudomonas infection

REACTIONS (1)
  - Off label use [Not Recovered/Not Resolved]
